FAERS Safety Report 15517088 (Version 1)
Quarter: 2018Q4

REPORT INFORMATION
  Report Type: Spontaneous
  Country: CL (occurrence: CL)
  Receive Date: 20181017
  Receipt Date: 20181017
  Transmission Date: 20190205
  Serious: Yes (Hospitalization)
  Sender: FDA-Public Use
  Company Number: CL-PFIZER INC-2018343587

PATIENT
  Age: 15 Year
  Sex: Male
  Weight: 78.5 kg

DRUGS (2)
  1. GENOTROPIN [Suspect]
     Active Substance: SOMATROPIN
     Indication: HYPOPITUITARISM
     Dosage: 5.9 IU, DAILY
     Route: 058
     Dates: start: 20180418, end: 20180820
  2. IGF-1 [Concomitant]
     Active Substance: DIETARY SUPPLEMENT
     Dosage: 70NG / ML (VN 220-616)

REACTIONS (1)
  - Epiphysiolysis [Recovering/Resolving]

NARRATIVE: CASE EVENT DATE: 201807
